FAERS Safety Report 8861200 (Version 1)
Quarter: 2012Q4

REPORT INFORMATION
  Report Type: Spontaneous
  Country: US (occurrence: None)
  Receive Date: 20121025
  Receipt Date: 20121025
  Transmission Date: 20130627
  Serious: No
  Sender: FDA-Public Use
  Company Number: None

PATIENT
  Age: 71 Year
  Sex: Female

DRUGS (1)
  1. CLINDAMYCIN [Suspect]
     Route: 048
     Dates: start: 20121016, end: 20121021

REACTIONS (4)
  - Angioedema [None]
  - Rash [None]
  - Cold sweat [None]
  - Hypotension [None]
